FAERS Safety Report 10620054 (Version 1)
Quarter: 2014Q4

REPORT INFORMATION
  Report Type: Spontaneous
  Country: RU (occurrence: None)
  Receive Date: 20141128
  Receipt Date: 20141128
  Transmission Date: 20150529
  Serious: Yes (Hospitalization, Other)
  Sender: FDA-Public Use
  Company Number: B1013795A

PATIENT
  Sex: Male

DRUGS (5)
  1. EPIVIR [Suspect]
     Active Substance: LAMIVUDINE
     Indication: HIV INFECTION
     Dates: start: 2014
  2. BISEPTOL (SULFAMETHOXAZOLE + TRIMETHOPRIM) [Concomitant]
  3. VIDEX [Suspect]
     Active Substance: DIDANOSINE
     Indication: HIV INFECTION
     Dates: start: 2014
  4. STOCRIN [Suspect]
     Active Substance: EFAVIRENZ
     Indication: HIV INFECTION
     Dates: start: 2014
  5. FOLIC ACID (FOLIC ACID) [Concomitant]
     Active Substance: FOLIC ACID

REACTIONS (8)
  - Pneumocystis jirovecii pneumonia [None]
  - White blood cell count decreased [None]
  - Lymphocytosis [None]
  - Tuberculosis [None]
  - Epstein-Barr virus infection [None]
  - Dizziness [None]
  - Pneumonia cytomegaloviral [None]
  - CD4 lymphocytes decreased [None]

NARRATIVE: CASE EVENT DATE: 201406
